FAERS Safety Report 4725810-2 (Version None)
Quarter: 2005Q3

REPORT INFORMATION
  Report Type: 
  Country: None (occurrence: None)
  Receive Date: 20050722
  Receipt Date: 20050722
  Transmission Date: 20060218
  Serious: Yes (Hospitalization)
  Sender: FDA-Public Use
  Company Number: None

PATIENT
  Age: 53 Year
  Sex: Male

DRUGS (2)
  1. THIORIDAZINE [Suspect]
     Dosage: 200MG ONE AT BEDTIME ORAL
     Route: 048
  2. TRAZODONE [Suspect]
     Dosage: 50MG ONE AT BEDTIME ORAL
     Route: 048

REACTIONS (2)
  - MENTAL STATUS CHANGES [None]
  - URINARY TRACT INFECTION [None]
